FAERS Safety Report 11594934 (Version 3)
Quarter: 2015Q4

REPORT INFORMATION
  Report Type: Spontaneous
  Country: LV (occurrence: LV)
  Receive Date: 20151005
  Receipt Date: 20151009
  Transmission Date: 20160304
  Serious: Yes (Death, Life-Threatening, Hospitalization, Disabling, Other)
  Sender: FDA-Public Use
  Company Number: LV-ABBVIE-15P-287-1474372-00

PATIENT
  Age: 65 Year
  Sex: Male

DRUGS (7)
  1. RIBAVIRIN. [Suspect]
     Active Substance: RIBAVIRIN
     Indication: HEPATIC CIRRHOSIS
  2. VIEKIRAX [Suspect]
     Active Substance: OMBITASVIR\PARITAPREVIR\RITONAVIR
     Indication: HEPATIC CIRRHOSIS
  3. NOLIPREL [Concomitant]
     Indication: HYPERTENSION
     Dosage: FORM STRENGTH: 5MG/1.25MG
     Route: 048
     Dates: start: 20150309, end: 20150329
  4. RIBAVIRIN. [Suspect]
     Active Substance: RIBAVIRIN
     Indication: CHRONIC HEPATITIS C
     Route: 048
     Dates: start: 20150803, end: 20150929
  5. VIEKIRAX [Suspect]
     Active Substance: OMBITASVIR\PARITAPREVIR\RITONAVIR
     Indication: CHRONIC HEPATITIS C
     Dosage: FORM STRENGTH: 12.5MG, 75 MG, 50 MG.
     Route: 048
     Dates: start: 20150803, end: 20150929
  6. EXVIERA [Suspect]
     Active Substance: DASABUVIR
     Indication: CHRONIC HEPATITIS C
     Route: 048
     Dates: start: 20150803, end: 20150929
  7. EXVIERA [Suspect]
     Active Substance: DASABUVIR
     Indication: HEPATIC CIRRHOSIS

REACTIONS (9)
  - Gastric ulcer haemorrhage [Fatal]
  - Hepatic cirrhosis [Fatal]
  - Gastric neoplasm [Not Recovered/Not Resolved]
  - Shock [Fatal]
  - Condition aggravated [Not Recovered/Not Resolved]
  - Prothrombin time shortened [Not Recovered/Not Resolved]
  - Decreased appetite [Not Recovered/Not Resolved]
  - Blood bilirubin increased [Not Recovered/Not Resolved]
  - Haemorrhagic anaemia [Fatal]

NARRATIVE: CASE EVENT DATE: 20150919
